FAERS Safety Report 5453677-6 (Version None)
Quarter: 2007Q3

REPORT INFORMATION
  Report Type: 
  Country: None (occurrence: None)
  Receive Date: 20070917
  Receipt Date: 20070907
  Transmission Date: 20080115
  Serious: Yes (Hospitalization)
  Sender: FDA-Public Use
  Company Number: CA-JNJFOC-20070505911

PATIENT
  Age: 33 Week

DRUGS (3)
  1. REMICADE [Suspect]
  2. REMICADE [Suspect]
     Indication: DRUG EXPOSURE DURING PREGNANCY
  3. SOLU-CORTEF [Concomitant]
     Indication: PREMEDICATION

REACTIONS (2)
  - HOSPITALISATION [None]
  - PREMATURE BABY [None]
